FAERS Safety Report 14670578 (Version 3)
Quarter: 2018Q2

REPORT INFORMATION
  Report Type: Spontaneous
  Country: CN (occurrence: CN)
  Receive Date: 20180322
  Receipt Date: 20180503
  Transmission Date: 20180711
  Serious: Yes (Other)
  Sender: FDA-Public Use
  Company Number: CN-GILEAD-2018-0328254

PATIENT

DRUGS (6)
  1. HEPSERA [Suspect]
     Active Substance: ADEFOVIR DIPIVOXIL
     Indication: HEPATITIS B
     Dosage: UNK
     Route: 048
     Dates: end: 201602
  2. VIREAD [Suspect]
     Active Substance: TENOFOVIR DISOPROXIL FUMARATE
     Indication: HEPATITIS B
     Dosage: 300 MG, QD
     Route: 048
     Dates: start: 201602
  3. HEPTODIN [Suspect]
     Active Substance: LAMIVUDINE
     Dosage: UNK, 100 MG
     Route: 048
  4. HEPTODIN [Suspect]
     Active Substance: LAMIVUDINE
     Dosage: UNK, 100 MG
     Route: 048
  5. HEPTODIN [Suspect]
     Active Substance: LAMIVUDINE
     Indication: HEPATITIS B
     Dosage: UNK, 100 MG
     Route: 048
  6. ENTECAVIR. [Suspect]
     Active Substance: ENTECAVIR
     Indication: HEPATITIS B
     Dosage: UNK
     Route: 048
     Dates: start: 20180313

REACTIONS (3)
  - Drug resistance [Not Recovered/Not Resolved]
  - Drug ineffective [Unknown]
  - Hepatic cirrhosis [Unknown]
